FAERS Safety Report 13369300 (Version 1)
Quarter: 2017Q1

REPORT INFORMATION
  Report Type: Spontaneous
  Country: US (occurrence: US)
  Receive Date: 20170324
  Receipt Date: 20170324
  Transmission Date: 20170429
  Serious: No
  Sender: FDA-Public Use
  Company Number: US-HORIZON-RAV-0083-2017

PATIENT
  Age: 49 Year
  Sex: Male

DRUGS (1)
  1. RAVICTI [Suspect]
     Active Substance: GLYCEROL PHENYLBUTYRATE
     Indication: UREA CYCLE ENZYME DEFICIENCY
     Dosage: 4.5 ML TID
     Dates: start: 20141104

REACTIONS (3)
  - Wisdom teeth removal [Recovered/Resolved]
  - Tooth infection [Recovered/Resolved]
  - Hypophagia [Recovered/Resolved]
